FAERS Safety Report 6539217-9 (Version None)
Quarter: 2010Q1

REPORT INFORMATION
  Report Type: 
  Country: None (occurrence: None)
  Receive Date: 20100115
  Receipt Date: 20100105
  Transmission Date: 20100710
  Serious: Yes (Hospitalization)
  Sender: FDA-Public Use
  Company Number: US-ELI_LILLY_AND_COMPANY-US201001000606

PATIENT
  Sex: Male

DRUGS (4)
  1. CYMBALTA [Suspect]
     Indication: GENERALISED ANXIETY DISORDER
     Dosage: 60 MG, DAILY (1/D)
     Dates: start: 20090101, end: 20091227
  2. CYMBALTA [Suspect]
     Dosage: 60 MG, DAILY (1/D)
     Dates: start: 20100104
  3. VALIUM [Concomitant]
  4. CHANTIX                            /05703001/ [Concomitant]

REACTIONS (5)
  - DRUG WITHDRAWAL SYNDROME [None]
  - IRRITABILITY [None]
  - MUSCLE TIGHTNESS [None]
  - NERVE COMPRESSION [None]
  - NERVOUSNESS [None]
